FAERS Safety Report 6253843-6 (Version None)
Quarter: 2009Q3

REPORT INFORMATION
  Report Type: 
  Country: None (occurrence: None)
  Receive Date: 20090702
  Receipt Date: 20090622
  Transmission Date: 20100115
  Serious: Yes (Other)
  Sender: FDA-Public Use
  Company Number: DE-BAYER-200924073GPV

PATIENT
  Age: 38 Year

DRUGS (6)
  1. ZEVALIN [Suspect]
     Indication: NON-HODGKIN'S LYMPHOMA
     Dosage: DAY -21
  2. ZEVALIN [Suspect]
     Dosage: DAY -14
  3. YTRACIS [Suspect]
     Indication: NON-HODGKIN'S LYMPHOMA
     Dosage: DAY -14
  4. FLUDARABINE PHOSPHATE [Suspect]
     Indication: STEM CELL TRANSPLANT
     Dosage: DAY -21
  5. INDIUM 111 [Suspect]
     Indication: STEM CELL TRANSPLANT
     Dosage: DAY -21
  6. CYCLOSPORINE [Concomitant]
     Indication: IMMUNOSUPPRESSION

REACTIONS (9)
  - CYTOMEGALOVIRUS INFECTION [None]
  - DIARRHOEA [None]
  - GASTROINTESTINAL HAEMORRHAGE [None]
  - HYPOKALAEMIA [None]
  - LUNG INFILTRATION [None]
  - PYREXIA [None]
  - SINUSITIS [None]
  - SUBILEUS [None]
  - THROMBOCYTOPENIA [None]
